FAERS Safety Report 4745427-3 (Version None)
Quarter: 2005Q3

REPORT INFORMATION
  Report Type: 
  Country: None (occurrence: None)
  Receive Date: 20050811
  Receipt Date: 20050803
  Transmission Date: 20060218
  Serious: Yes (Death, Hospitalization, Other)
  Sender: FDA-Public Use
  Company Number: 2005082146

PATIENT
  Sex: Female

DRUGS (4)
  1. CELEBREX [Suspect]
     Indication: ILL-DEFINED DISORDER
  2. PREDNISONE [Concomitant]
     Indication: ILL-DEFINED DISORDER
  3. METHOTREXATE [Suspect]
     Indication: ILL-DEFINED DISORDER
  4. NABUMETONE [Concomitant]

REACTIONS (3)
  - HIP ARTHROPLASTY [None]
  - MYOCARDIAL INFARCTION [None]
  - PERFORATED ULCER [None]
